FAERS Safety Report 9938604 (Version 2)
Quarter: 2014Q1

REPORT INFORMATION
  Report Type: Spontaneous
  Country: US (occurrence: US)
  Receive Date: 20140303
  Receipt Date: 20140317
  Transmission Date: 20141002
  Serious: Yes (Other)
  Sender: FDA-Public Use
  Company Number: US-BAYER-2014-030006

PATIENT
  Age: 20 Year
  Sex: Female
  Weight: 151.93 kg

DRUGS (2)
  1. MIRENA [Suspect]
     Indication: CONTRACEPTION
     Dosage: 20 MCG/24HR, CONT
     Route: 015
     Dates: start: 200910, end: 20120301
  2. MIRENA [Suspect]
     Indication: CONTRACEPTION
     Dosage: 20 MCG/24HR, CONT
     Dates: start: 200908

REACTIONS (8)
  - Uterine perforation [None]
  - Back pain [None]
  - Arthralgia [None]
  - Gait disturbance [None]
  - Depression [None]
  - Anxiety [None]
  - Injury [None]
  - Emotional distress [None]
